FAERS Safety Report 19692397 (Version 1)
Quarter: 2021Q3

REPORT INFORMATION
  Report Type: Spontaneous
  Country: US (occurrence: US)
  Receive Date: 20210812
  Receipt Date: 20210812
  Transmission Date: 20211014
  Serious: Yes (Death, Other)
  Sender: FDA-Public Use
  Company Number: US-SA-2021SA266264

PATIENT
  Sex: Male

DRUGS (2)
  1. DUPIXENT [Suspect]
     Active Substance: DUPILUMAB
     Indication: DERMATITIS ATOPIC
  2. METHOTREXATE. [Concomitant]
     Active Substance: METHOTREXATE
     Indication: DERMATITIS ATOPIC

REACTIONS (1)
  - Cutaneous T-cell lymphoma [Fatal]
